FAERS Safety Report 6046981-4 (Version None)
Quarter: 2009Q1

REPORT INFORMATION
  Report Type: 
  Country: None (occurrence: None)
  Receive Date: 20090122
  Receipt Date: 20090114
  Transmission Date: 20090719
  Serious: Yes (Life-Threatening)
  Sender: FDA-Public Use
  Company Number: ES-TYCO HEALTHCARE/MALLINCKRODT-T200900063

PATIENT

DRUGS (1)
  1. ULTRAJECT [Suspect]
     Indication: COMPUTERISED TOMOGRAM ABDOMEN
     Dosage: 120 ML, SINGLE
     Route: 042
     Dates: start: 20090114, end: 20090114

REACTIONS (5)
  - COUGH [None]
  - DYSPNOEA [None]
  - EYE OEDEMA [None]
  - LARYNGEAL OEDEMA [None]
  - URTICARIA [None]
